FAERS Safety Report 6938587-7 (Version None)
Quarter: 2010Q3

REPORT INFORMATION
  Report Type: 
  Country: None (occurrence: None)
  Receive Date: 20100824
  Receipt Date: 20100817
  Transmission Date: 20110219
  Serious: Yes (Other)
  Sender: FDA-Public Use
  Company Number: US-BAYER-201019208BCC

PATIENT
  Age: 72 Year
  Sex: Male
  Weight: 95 kg

DRUGS (8)
  1. ASPIRIN [Suspect]
     Indication: CEREBROVASCULAR ACCIDENT PROPHYLAXIS
     Route: 048
     Dates: start: 20020301
  2. PLAVIX [Suspect]
     Indication: CEREBROVASCULAR ACCIDENT PROPHYLAXIS
     Route: 048
     Dates: start: 20020301, end: 20100127
  3. PLAVIX [Suspect]
     Route: 048
  4. KAPIDEX [Suspect]
     Indication: GASTROOESOPHAGEAL REFLUX DISEASE
     Route: 065
     Dates: start: 20091001, end: 20100301
  5. LEXAPRO [Concomitant]
     Route: 065
     Dates: start: 20100201
  6. GLIMEPIRIDE [Concomitant]
     Route: 065
     Dates: start: 20020301
  7. METFORMIN [Concomitant]
     Route: 065
     Dates: start: 20020301
  8. ACTOS [Concomitant]
     Route: 065
     Dates: start: 20020301

REACTIONS (5)
  - BLOOD PRESSURE ABNORMAL [None]
  - CEREBROVASCULAR ACCIDENT [None]
  - MALAISE [None]
  - MIGRAINE [None]
  - VISION BLURRED [None]
